FAERS Safety Report 24746736 (Version 3)
Quarter: 2025Q1

REPORT INFORMATION
  Report Type: Spontaneous
  Country: US (occurrence: US)
  Receive Date: 20241218
  Receipt Date: 20250127
  Transmission Date: 20250409
  Serious: No
  Sender: KARYOPHARM THERAPEUTICS
  Company Number: US-KARYOPHARM-2024KPT001901

PATIENT

DRUGS (11)
  1. XPOVIO [Suspect]
     Active Substance: SELINEXOR
     Indication: Plasma cell myeloma
     Dosage: 60 MG, WEEKLY
     Route: 048
     Dates: start: 20241202
  2. ASPIRIN [Concomitant]
     Active Substance: ASPIRIN
  3. DEXAMETHASONE [Concomitant]
     Active Substance: DEXAMETHASONE
  4. DULOXETINE [Concomitant]
     Active Substance: DULOXETINE
  5. FENOFIBRATE [Concomitant]
     Active Substance: FENOFIBRATE
  6. LOVASTATIN [Concomitant]
     Active Substance: LOVASTATIN
  7. PANTOPRAZOLE [Concomitant]
     Active Substance: PANTOPRAZOLE
  8. POMALYST [Concomitant]
     Active Substance: POMALIDOMIDE
  9. PREGABALIN [Concomitant]
     Active Substance: PREGABALIN
  10. VALACYCLOVIR [Concomitant]
     Active Substance: VALACYCLOVIR HYDROCHLORIDE
  11. ZOFRAN [Concomitant]
     Active Substance: ONDANSETRON HYDROCHLORIDE

REACTIONS (4)
  - Neuropathy peripheral [Unknown]
  - Dizziness [Unknown]
  - Diarrhoea [Unknown]
  - Constipation [Unknown]

NARRATIVE: CASE EVENT DATE: 20241201
